FAERS Safety Report 17849046 (Version 7)
Quarter: 2021Q3

REPORT INFORMATION
  Report Type: Report from Study
  Country: US (occurrence: US)
  Receive Date: 20200602
  Receipt Date: 20210830
  Transmission Date: 20211014
  Serious: Yes (Death, Other)
  Sender: FDA-Public Use
  Company Number: US-ACADIA PHARMACEUTICALS INC.-ACA-2020-PIM-001523

PATIENT
  Age: 75 Year
  Sex: Male
  Weight: 79 kg

DRUGS (5)
  1. SEROQUEL [Concomitant]
     Active Substance: QUETIAPINE FUMARATE
     Indication: PRODUCT USED FOR UNKNOWN INDICATION
     Dosage: 25 MILLIGRAM
     Dates: start: 202005
  2. NUPLAZID [Suspect]
     Active Substance: PIMAVANSERIN TARTRATE
     Indication: HALLUCINATION
     Dosage: 34 MILLIGRAM, QD
     Route: 048
     Dates: start: 20200513
  3. XANAX [Concomitant]
     Active Substance: ALPRAZOLAM
     Indication: PRODUCT USED FOR UNKNOWN INDICATION
     Dosage: 0.25 MILLIGRAM
     Dates: start: 202005
  4. NUPLAZID [Suspect]
     Active Substance: PIMAVANSERIN TARTRATE
     Indication: PARKINSON^S DISEASE PSYCHOSIS
     Dosage: 34 MILLIGRAM, QD
     Route: 048
     Dates: start: 20200502
  5. NUPLAZID [Suspect]
     Active Substance: PIMAVANSERIN TARTRATE
     Indication: DELUSION

REACTIONS (19)
  - Death [Fatal]
  - Delusion [Not Recovered/Not Resolved]
  - Delusion [Unknown]
  - Hallucination [Unknown]
  - Confusional state [Recovering/Resolving]
  - Mood altered [Not Recovered/Not Resolved]
  - Confusional state [Unknown]
  - Hallucination [Unknown]
  - Hip fracture [Unknown]
  - Ill-defined disorder [Not Recovered/Not Resolved]
  - Peripheral swelling [Not Recovered/Not Resolved]
  - Hallucination [Unknown]
  - COVID-19 [Unknown]
  - Muscular weakness [Not Recovered/Not Resolved]
  - Gait inability [Unknown]
  - Abnormal behaviour [Not Recovered/Not Resolved]
  - Asthenia [Not Recovered/Not Resolved]
  - Dysstasia [Not Recovered/Not Resolved]
  - Hip arthroplasty [Unknown]

NARRATIVE: CASE EVENT DATE: 202005
